FAERS Safety Report 12840208 (Version 1)
Quarter: 2016Q4

REPORT INFORMATION
  Report Type: Spontaneous
  Country: FR (occurrence: FR)
  Receive Date: 20161012
  Receipt Date: 20161012
  Transmission Date: 20170207
  Serious: Yes (Other)
  Sender: FDA-Public Use
  Company Number: FR-PFIZER INC-2016471198

PATIENT
  Age: 57 Year
  Sex: Female

DRUGS (1)
  1. AROMASINE [Suspect]
     Active Substance: EXEMESTANE

REACTIONS (1)
  - Intra-abdominal haemorrhage [Unknown]
